FAERS Safety Report 6343962-8 (Version None)
Quarter: 2009Q3

REPORT INFORMATION
  Report Type: 
  Country: None (occurrence: None)
  Receive Date: 20090908
  Receipt Date: 20090826
  Transmission Date: 20100115
  Serious: Yes (Hospitalization)
  Sender: FDA-Public Use
  Company Number: CA-ELI_LILLY_AND_COMPANY-CA200908005736

PATIENT
  Age: 59 Year
  Sex: Female

DRUGS (6)
  1. FORTEO [Suspect]
     Indication: OSTEOPOROSIS
     Dosage: 20 UG, DAILY (1/D)
     Route: 058
     Dates: start: 20090727, end: 20090101
  2. CLONAZEPAM [Concomitant]
  3. ATIVAN [Concomitant]
  4. CALCIUM [Concomitant]
  5. VITAMIN D [Concomitant]
  6. TYLENOL WITH CODEIN #3 [Concomitant]
     Dosage: UNK, AS NEEDED

REACTIONS (3)
  - ARTHRALGIA [None]
  - CELLULITIS [None]
  - ERYTHEMA [None]
